FAERS Safety Report 7617002-4 (Version None)
Quarter: 2011Q3

REPORT INFORMATION
  Report Type: 
  Country: None (occurrence: None)
  Receive Date: 20110718
  Receipt Date: 20090630
  Transmission Date: 20111222
  Serious: No
  Sender: FDA-Public Use
  Company Number: 2009BI020170

PATIENT
  Age: 64 Year
  Sex: Female

DRUGS (1)
  1. TYSABRI [Suspect]
     Indication: MULTIPLE SCLEROSIS
     Route: 042
     Dates: start: 20080711

REACTIONS (7)
  - EYE INFLAMMATION [None]
  - ORAL HERPES [None]
  - STRESS [None]
  - CATARACT [None]
  - NASOPHARYNGITIS [None]
  - HERPES ZOSTER [None]
  - INFLUENZA [None]
